FAERS Safety Report 6043523-4 (Version None)
Quarter: 2009Q1

REPORT INFORMATION
  Report Type: 
  Country: None (occurrence: None)
  Receive Date: 20090114
  Receipt Date: 20090114
  Transmission Date: 20090719
  Serious: Yes (Life-Threatening)
  Sender: FDA-Public Use
  Company Number: None

PATIENT
  Age: 61 Year
  Sex: Male

DRUGS (2)
  1. LORAZEPAM [Suspect]
     Indication: AGITATION
     Dosage: 4MG/HOUR CONTINUOUS IV DRIP
     Route: 041
     Dates: start: 20081204, end: 20081205
  2. LORAZEPAM [Suspect]
     Indication: ALCOHOL WITHDRAWAL SYNDROME
     Dosage: 4MG/HOUR CONTINUOUS IV DRIP
     Route: 041
     Dates: start: 20081204, end: 20081205

REACTIONS (7)
  - BRADYCARDIA [None]
  - CONVULSION [None]
  - DYSPNOEA [None]
  - INCREASED UPPER AIRWAY SECRETION [None]
  - RESPIRATORY ARREST [None]
  - RESPIRATORY DEPRESSION [None]
  - RESPIRATORY DISORDER [None]
